FAERS Safety Report 19684841 (Version 1)
Quarter: 2021Q3

REPORT INFORMATION
  Report Type: Spontaneous
  Country: US (occurrence: US)
  Receive Date: 20210810
  Receipt Date: 20210810
  Transmission Date: 20211014
  Serious: No
  Sender: FDA-Public Use
  Company Number: None

PATIENT

DRUGS (2)
  1. MORPHINE SULFATE INJECTION [Suspect]
     Active Substance: MORPHINE SULFATE
  2. SODIUM BICARBONATE. [Suspect]
     Active Substance: SODIUM BICARBONATE

REACTIONS (2)
  - Intercepted product selection error [None]
  - Product packaging confusion [None]
